FAERS Safety Report 16017116 (Version 1)
Quarter: 2019Q1

REPORT INFORMATION
  Report Type: Spontaneous
  Country: US (occurrence: US)
  Receive Date: 20190228
  Receipt Date: 20190228
  Transmission Date: 20190418
  Serious: Yes (Other)
  Sender: FDA-Public Use
  Company Number: US-ASTRAZENECA-2019SE30437

PATIENT
  Age: 57 Year
  Sex: Male
  Weight: 69.8 kg

DRUGS (3)
  1. CIMETIDINE [Suspect]
     Active Substance: CIMETIDINE
     Dosage: TWO TIMES A DAY
     Route: 065
  2. NEXIUM [Suspect]
     Active Substance: ESOMEPRAZOLE MAGNESIUM
     Dosage: UNK
     Route: 048
  3. OMEPRAZOLE. [Suspect]
     Active Substance: OMEPRAZOLE
     Dosage: TWO TIMES DAILY
     Route: 048

REACTIONS (3)
  - Haemorrhage [Unknown]
  - Gastric ulcer [Unknown]
  - Weight decreased [Unknown]
